FAERS Safety Report 4315604-4 (Version None)
Quarter: 2004Q1

REPORT INFORMATION
  Report Type: 
  Country: None (occurrence: None)
  Receive Date: 20040310
  Receipt Date: 20040304
  Transmission Date: 20041129
  Serious: No
  Sender: FDA-Public Use
  Company Number: USA-2004-0013574

PATIENT
  Age: 77 Year
  Sex: Female
  Weight: 74 kg

DRUGS (3)
  1. CHIROCAINE [Suspect]
     Indication: ANAESTHESIA
     Dosage: 19 ML, SEE TEXT, INTRAVENOUS
     Route: 042
  2. EPINEPHRINE [Concomitant]
  3. ENALAPRIL MALEATE [Concomitant]

REACTIONS (6)
  - AGITATION [None]
  - ANAESTHETIC COMPLICATION [None]
  - DISORIENTATION [None]
  - DYSARTHRIA [None]
  - MEDICATION ERROR [None]
  - SOMNOLENCE [None]
